FAERS Safety Report 25556568 (Version 1)
Quarter: 2025Q3

REPORT INFORMATION
  Report Type: Spontaneous
  Country: CN (occurrence: CN)
  Receive Date: 20250715
  Receipt Date: 20250715
  Transmission Date: 20251020
  Serious: Yes (Other)
  Sender: AMGEN
  Company Number: CN-AMGEN-CHNSP2025135081

PATIENT
  Age: 67 Year
  Sex: Male

DRUGS (11)
  1. XGEVA [Suspect]
     Active Substance: DENOSUMAB
     Indication: Lung carcinoma cell type unspecified stage IV
     Route: 065
     Dates: start: 2024
  2. XGEVA [Suspect]
     Active Substance: DENOSUMAB
     Indication: Metastases to bone
  3. BEVACIZUMAB [Suspect]
     Active Substance: BEVACIZUMAB
     Indication: Lung carcinoma cell type unspecified stage IV
     Route: 065
     Dates: start: 2024
  4. GEMCITABINE [Concomitant]
     Active Substance: GEMCITABINE
     Indication: Lung neoplasm malignant
     Route: 065
     Dates: start: 2024
  5. GEMCITABINE [Concomitant]
     Active Substance: GEMCITABINE
     Indication: Metastases to bone
  6. SINTILIMAB [Concomitant]
     Active Substance: SINTILIMAB
     Indication: Lung neoplasm malignant
     Route: 065
     Dates: start: 2024
  7. SINTILIMAB [Concomitant]
     Active Substance: SINTILIMAB
     Indication: Metastases to bone
  8. PACLITAXEL [Concomitant]
     Active Substance: PACLITAXEL
     Indication: Lung neoplasm malignant
     Route: 065
     Dates: start: 2024
  9. PACLITAXEL [Concomitant]
     Active Substance: PACLITAXEL
     Indication: Metastases to bone
  10. ALBUMIN HUMAN [Concomitant]
     Active Substance: ALBUMIN HUMAN
     Indication: Lung neoplasm malignant
     Route: 065
     Dates: start: 2024
  11. ALBUMIN HUMAN [Concomitant]
     Active Substance: ALBUMIN HUMAN
     Indication: Metastases to bone

REACTIONS (4)
  - Myelosuppression [Unknown]
  - Leukopenia [Recovered/Resolved]
  - Nausea [Recovered/Resolved]
  - Therapy partial responder [Unknown]
